FAERS Safety Report 7320821-5 (Version None)
Quarter: 2011Q1

REPORT INFORMATION
  Report Type: 
  Country: None (occurrence: None)
  Receive Date: 20110228
  Receipt Date: 20110217
  Transmission Date: 20110831
  Serious: Yes (Other)
  Sender: FDA-Public Use
  Company Number: US-TEVA-267674USA

PATIENT
  Sex: Female
  Weight: 91.708 kg

DRUGS (1)
  1. POTASSIUM CHLORIDE 8MEQ (600 MG) TABLETS [Suspect]

REACTIONS (8)
  - THROAT IRRITATION [None]
  - PYREXIA [None]
  - FOREIGN BODY [None]
  - OROPHARYNGEAL PAIN [None]
  - DRUG ADMINISTRATION ERROR [None]
  - BRONCHITIS [None]
  - HAEMOPTYSIS [None]
  - COUGH [None]
